FAERS Safety Report 6155649-5 (Version None)
Quarter: 2009Q2

REPORT INFORMATION
  Report Type: 
  Country: None (occurrence: None)
  Receive Date: 20090413
  Receipt Date: 20090330
  Transmission Date: 20091009
  Serious: Yes (Hospitalization, Other)
  Sender: FDA-Public Use
  Company Number: 238279

PATIENT
  Age: 21 Year
  Sex: Female

DRUGS (2)
  1. ISUPREL [Suspect]
     Indication: CARDIAC ELECTROPHYSIOLOGIC STUDY
  2. EPINEPHRINE [Suspect]
     Indication: CARDIAC ELECTROPHYSIOLOGIC STUDY
     Dosage: INFUSION

REACTIONS (10)
  - BLOOD CREATINE PHOSPHOKINASE MB INCREASED [None]
  - CHEST PAIN [None]
  - DYSPNOEA [None]
  - EJECTION FRACTION DECREASED [None]
  - ELECTROCARDIOGRAM QT PROLONGED [None]
  - ELECTROCARDIOGRAM T WAVE AMPLITUDE INCREASED [None]
  - PULMONARY OEDEMA [None]
  - SINUS TACHYCARDIA [None]
  - STRESS CARDIOMYOPATHY [None]
  - VENTRICULAR HYPOKINESIA [None]
